FAERS Safety Report 21735588 (Version 1)
Quarter: 2022Q4

REPORT INFORMATION
  Report Type: Spontaneous
  Country: US (occurrence: US)
  Receive Date: 20221215
  Receipt Date: 20221215
  Transmission Date: 20230113
  Serious: Yes (Other)
  Sender: FDA-Public Use
  Company Number: US-MYLANLABS-2022M1139248

PATIENT
  Age: 3 Decade
  Sex: Female

DRUGS (4)
  1. PREDNISONE [Suspect]
     Active Substance: PREDNISONE
     Indication: Organising pneumonia
     Dosage: 60 MILLIGRAM, QD
     Route: 065
  2. RITUXIMAB [Concomitant]
     Active Substance: RITUXIMAB
     Indication: Organising pneumonia
     Dosage: 1000 MILLIGRAM RECEIVED 2 DOSES ..
     Route: 065
  3. CLARITHROMYCIN [Concomitant]
     Active Substance: CLARITHROMYCIN
     Indication: Organising pneumonia
     Dosage: 250 MILLIGRAM, BID (RECEIVED FOR SEVERAL MONTHS)
     Route: 065
  4. MYCOPHENOLATE MOFETIL [Concomitant]
     Active Substance: MYCOPHENOLATE MOFETIL
     Indication: Organising pneumonia
     Dosage: 2 GRAM, QD
     Route: 065

REACTIONS (4)
  - Diabetes mellitus [Unknown]
  - Toxicity to various agents [Unknown]
  - Non-alcoholic fatty liver [Unknown]
  - Weight increased [Unknown]
